FAERS Safety Report 9719154 (Version 2)
Quarter: 2013Q4

REPORT INFORMATION
  Report Type: Spontaneous
  Country: IT (occurrence: IT)
  Receive Date: 20131127
  Receipt Date: 20131209
  Transmission Date: 20140711
  Serious: Yes (Other)
  Sender: FDA-Public Use
  Company Number: PHHY2013IT130839

PATIENT
  Age: 52 Year
  Sex: Male

DRUGS (4)
  1. CARBAMAZEPINE [Suspect]
     Indication: EPILEPSY
  2. PHENOBARBITAL [Suspect]
     Indication: EPILEPSY
     Dosage: 100 MG, PER DAY
  3. PHENOBARBITAL [Suspect]
     Dosage: 200 MG, PER DAY
  4. LACOSAMIDE [Concomitant]
     Dosage: 300 MG, PER DAY

REACTIONS (12)
  - Osteomalacia [Unknown]
  - Musculoskeletal pain [Recovered/Resolved]
  - Pain in extremity [Recovered/Resolved]
  - Muscular weakness [Recovering/Resolving]
  - Asthenia [Unknown]
  - Dysphagia [Unknown]
  - Dysphonia [Unknown]
  - Weight decreased [Unknown]
  - Muscle atrophy [Unknown]
  - Osteoporosis [Unknown]
  - Resorption bone increased [Unknown]
  - Drug ineffective [Unknown]
